FAERS Safety Report 5500149-6 (Version None)
Quarter: 2007Q4

REPORT INFORMATION
  Report Type: 
  Country: None (occurrence: None)
  Receive Date: 20071025
  Receipt Date: 20071012
  Transmission Date: 20080405
  Serious: Yes (Death, Other)
  Sender: FDA-Public Use
  Company Number: 2007JP004727

PATIENT
  Age: 78 Year
  Sex: Male
  Weight: 54 kg

DRUGS (18)
  1. FUNGUARD(MICAFUNGIN) INJECTION [Suspect]
     Indication: PNEUMONIA ASPIRATION
     Dosage: 150 MG, UID/QD, IV DRIP
     Route: 041
     Dates: start: 20050127, end: 20050218
  2. CARBENIN(BETAMIPRON, PANIPENEM) INJECTION [Suspect]
     Dosage: IV DRIP
     Route: 041
  3. TARGOCID [Suspect]
     Indication: PNEUMONIA ASPIRATION
     Dosage: 400 MG, UID/QD, IV DRIP, 200 MG, UID/QD, IV DRIP
     Route: 041
     Dates: start: 20050131, end: 20050131
  4. TARGOCID [Suspect]
     Indication: PNEUMONIA ASPIRATION
     Dosage: 400 MG, UID/QD, IV DRIP, 200 MG, UID/QD, IV DRIP
     Route: 041
     Dates: start: 20050201, end: 20050217
  5. MINOCYCLINE HCL [Concomitant]
  6. DOPAMINE HYDROCHLORIDE [Concomitant]
  7. DOBUTREX [Concomitant]
  8. NOREPINEPHRINE BITARTRATE [Concomitant]
  9. LASIX [Concomitant]
  10. HICALIQ (GLUCOSE, POTASSIUM ACETATE, MAGNESIUM SULFATE, ZINC SULFATE, [Concomitant]
  11. KIDMAN (AMINO ACIDS NOS) [Concomitant]
  12. NEO-MINOPHAGEN C (GLYCYRRHIZIC ACID, AMMONIUM SALT) [Concomitant]
  13. NEOLAMIN MULTI (VITAMINS NOS) [Concomitant]
  14. MINERAL TAB [Concomitant]
  15. FAMOTIDINE [Concomitant]
  16. GLUCOSE (GLUCOSE) [Concomitant]
  17. WARFARIN SODIUM [Concomitant]
  18. PLETAL [Concomitant]

REACTIONS (9)
  - ALANINE AMINOTRANSFERASE INCREASED [None]
  - ASPARTATE AMINOTRANSFERASE INCREASED [None]
  - BLOOD LACTATE DEHYDROGENASE INCREASED [None]
  - CONDITION AGGRAVATED [None]
  - GENERAL PHYSICAL HEALTH DETERIORATION [None]
  - LIVER DISORDER [None]
  - MALNUTRITION [None]
  - RENAL FAILURE [None]
  - RENAL IMPAIRMENT [None]
